FAERS Safety Report 12144325 (Version 1)
Quarter: 2016Q1

REPORT INFORMATION
  Report Type: Spontaneous
  Country: BE (occurrence: BE)
  Receive Date: 20160304
  Receipt Date: 20160304
  Transmission Date: 20160526
  Serious: Yes (Death, Hospitalization, Other)
  Sender: FDA-Public Use
  Company Number: BE-AMGEN-BELSP2016026150

PATIENT

DRUGS (1)
  1. NEULASTA [Suspect]
     Active Substance: PEGFILGRASTIM
     Indication: LUNG SQUAMOUS CELL CARCINOMA RECURRENT
     Dosage: UNK
     Route: 065

REACTIONS (4)
  - Death [Fatal]
  - Hospitalisation [Unknown]
  - Lung infiltration [Unknown]
  - Acute respiratory distress syndrome [Unknown]
